FAERS Safety Report 5150732-5 (Version None)
Quarter: 2006Q4

REPORT INFORMATION
  Report Type: 
  Country: None (occurrence: None)
  Receive Date: 20061108
  Receipt Date: 19980204
  Transmission Date: 20070319
  Serious: Yes (Death)
  Sender: FDA-Public Use
  Company Number: 2006121474

PATIENT
  Age: 44 Year
  Sex: Male

DRUGS (3)
  1. IRINOTECAN HCL [Suspect]
     Indication: METASTASIS
     Dosage: INTRAVENOUS
     Route: 042
     Dates: start: 19980112, end: 19980112
  2. FLUOROURACIL [Suspect]
     Indication: COLORECTAL CANCER
     Dosage: INTRAVENOUS
     Route: 042
     Dates: start: 19980112, end: 19980113
  3. FOLINIC ACID (FOLINIC ACID) [Suspect]
     Indication: COLORECTAL CANCER
     Dosage: INTRAVENOUS
     Route: 042
     Dates: start: 19980112, end: 19980113

REACTIONS (5)
  - ABDOMINAL PAIN [None]
  - ASTHENIA [None]
  - MALAISE [None]
  - PAIN IN JAW [None]
  - PULMONARY EMBOLISM [None]
